FAERS Safety Report 4788187-2 (Version None)
Quarter: 2005Q4

REPORT INFORMATION
  Report Type: 
  Country: None (occurrence: None)
  Receive Date: 20051003
  Receipt Date: 20050630
  Transmission Date: 20060501
  Serious: Yes (Hospitalization)
  Sender: FDA-Public Use
  Company Number: T03-USA-03304-01

PATIENT
  Age: 77 Year
  Sex: Male

DRUGS (4)
  1. MEMANTINE HCL [Suspect]
     Indication: OPEN ANGLE GLAUCOMA
     Dosage: 10 MG QD PO
     Route: 048
     Dates: start: 20010701
  2. ATENOLOL [Concomitant]
  3. WARFARIN SODIUM [Concomitant]
  4. MIRTAZAPINE [Concomitant]

REACTIONS (4)
  - DRUG LEVEL BELOW THERAPEUTIC [None]
  - GAIT DISTURBANCE [None]
  - INCORRECT DOSE ADMINISTERED [None]
  - MYOCLONUS [None]
